FAERS Safety Report 5651082-0 (Version None)
Quarter: 2008Q1

REPORT INFORMATION
  Report Type: 
  Country: None (occurrence: None)
  Receive Date: 20080305
  Receipt Date: 20080303
  Transmission Date: 20080703
  Serious: Yes (Other)
  Sender: FDA-Public Use
  Company Number: B0511022A

PATIENT
  Age: 41 Year
  Sex: Male

DRUGS (2)
  1. AUGMENTIN '125' [Suspect]
     Indication: INFECTION
     Route: 048
     Dates: start: 20080104
  2. NASONEX [Concomitant]
     Route: 045
     Dates: start: 20080104

REACTIONS (4)
  - ANGIOEDEMA [None]
  - HYPERSENSITIVITY [None]
  - PRURITUS [None]
  - RASH [None]
